FAERS Safety Report 22009075 (Version 1)
Quarter: 2023Q1

REPORT INFORMATION
  Report Type: Spontaneous
  Country: US (occurrence: US)
  Receive Date: 20230220
  Receipt Date: 20230220
  Transmission Date: 20230418
  Serious: No
  Sender: FDA-Public Use
  Company Number: US-Y-MABS THERAPEUTICS, INC.-SPO2023-US-001069

PATIENT

DRUGS (5)
  1. DANYELZA [Suspect]
     Active Substance: NAXITAMAB-GQGK
     Indication: Neuroblastoma recurrent
     Dosage: CYCLE 1, DOSE 1
     Route: 042
  2. DANYELZA [Suspect]
     Active Substance: NAXITAMAB-GQGK
     Dosage: CYCLE UNKNOWN, DOSE 1 (DAY 2, STEP-UP PROTOCOL)
     Route: 042
  3. DANYELZA [Suspect]
     Active Substance: NAXITAMAB-GQGK
     Dosage: CYCLE UNKNOWN, DOSE 2 (DAY 4, STEP-UP PROTOCOL)
     Route: 042
  4. DANYELZA [Suspect]
     Active Substance: NAXITAMAB-GQGK
     Dosage: CYCLE UNKNOWN, DOSE 3 (DAY 9, STEP-UP PROTOCOL)
     Route: 042
  5. DANYELZA [Suspect]
     Active Substance: NAXITAMAB-GQGK
     Dosage: CYCLE UNKNOWN, DOSE 4 (DAY 11, STEP-UP PROTOCOL)
     Route: 042

REACTIONS (3)
  - Blood alkaline phosphatase increased [Unknown]
  - Rash [Unknown]
  - Off label use [Recovered/Resolved]
